FAERS Safety Report 4929201-0 (Version None)
Quarter: 2006Q1

REPORT INFORMATION
  Report Type: 
  Country: None (occurrence: None)
  Receive Date: 20060301
  Receipt Date: 20051017
  Transmission Date: 20060701
  Serious: Yes (Hospitalization)
  Sender: FDA-Public Use
  Company Number: US-MERCK-0510USA07800

PATIENT
  Age: 56 Year
  Sex: Male
  Weight: 98 kg

DRUGS (18)
  1. VIOXX [Suspect]
     Indication: ARTHRALGIA
     Route: 048
     Dates: start: 20021018, end: 20040930
  2. VIOXX [Suspect]
     Indication: BACK PAIN
     Route: 048
     Dates: start: 20021018, end: 20040930
  3. ALLEGRA [Concomitant]
     Route: 065
  4. FLONASE [Concomitant]
     Route: 065
  5. NORVASC [Concomitant]
     Route: 065
  6. SINGULAIR [Concomitant]
     Route: 065
  7. CIPRO [Concomitant]
     Route: 065
  8. SEREVENT [Concomitant]
     Route: 055
  9. FLOVENT [Concomitant]
     Route: 065
  10. ALBUTEROL [Concomitant]
     Route: 065
  11. ATACAND [Concomitant]
     Route: 065
  12. ACETAMINOPHEN AND PROPOXYPHENE NAPSYLATE [Concomitant]
     Route: 065
  13. LEVAQUIN [Concomitant]
     Route: 065
  14. TRIMETHOPRIM [Concomitant]
     Route: 065
  15. OMEPRAZOLE [Concomitant]
     Route: 065
  16. SAW PALMETTO [Concomitant]
     Route: 065
     Dates: start: 20020701
  17. ADVAIR DISKUS 100/50 [Concomitant]
     Route: 065
  18. PRILOSEC [Concomitant]
     Route: 065

REACTIONS (9)
  - ACUTE CORONARY SYNDROME [None]
  - ACUTE MYOCARDIAL INFARCTION [None]
  - BLOOD CHOLESTEROL INCREASED [None]
  - BLOOD TRIGLYCERIDES INCREASED [None]
  - CHEST PAIN [None]
  - CORONARY ARTERY DISEASE [None]
  - MYOCARDIAL INFARCTION [None]
  - STENT OCCLUSION [None]
  - THERAPY NON-RESPONDER [None]
